FAERS Safety Report 12317014 (Version 2)
Quarter: 2016Q2

REPORT INFORMATION
  Report Type: Spontaneous
  Country: GB (occurrence: GB)
  Receive Date: 20160429
  Receipt Date: 20160429
  Transmission Date: 20160815
  Serious: Yes (Death)
  Sender: FDA-Public Use
  Company Number: GB-CIPLA LTD.-2016GB04240

PATIENT

DRUGS (14)
  1. ORPHENADRINE [Suspect]
     Active Substance: ORPHENADRINE
     Dosage: UNK
     Route: 065
  2. MORPHINE [Suspect]
     Active Substance: MORPHINE
     Dosage: UNK
     Route: 065
  3. QUETIAPINE. [Suspect]
     Active Substance: QUETIAPINE
     Dosage: UNK
     Route: 048
  4. PALIPERIDONE. [Suspect]
     Active Substance: PALIPERIDONE
     Dosage: UNK
     Route: 048
  5. AMISULPRIDE [Suspect]
     Active Substance: AMISULPRIDE
     Dosage: UNK
     Route: 048
  6. DIAMORPHINE [Suspect]
     Active Substance: DIACETYLMORPHINE
     Dosage: UNK
     Route: 065
  7. CLOZAPINE. [Suspect]
     Active Substance: CLOZAPINE
     Dosage: UNK
     Route: 048
  8. DEXTROPROPOXYPHENE [Suspect]
     Active Substance: PROPOXYPHENE HYDROCHLORIDE
     Dosage: UNK
     Route: 065
  9. RISPERIDONE. [Suspect]
     Active Substance: RISPERIDONE
     Dosage: UNK
     Route: 048
  10. TRAMADOL. [Suspect]
     Active Substance: TRAMADOL
     Dosage: UNK
     Route: 065
  11. OLANZAPINE. [Suspect]
     Active Substance: OLANZAPINE
     Dosage: UNK
     Route: 048
  12. ARIPIPRAZOLE. [Suspect]
     Active Substance: ARIPIPRAZOLE
     Dosage: UNK
     Route: 048
  13. DIHYDROCODEINE [Suspect]
     Active Substance: DIHYDROCODEINE
     Dosage: UNK
     Route: 065
  14. METHADONE [Suspect]
     Active Substance: METHADONE HYDROCHLORIDE
     Dosage: UNK
     Route: 065

REACTIONS (1)
  - Toxicity to various agents [Fatal]
